FAERS Safety Report 16870178 (Version 1)
Quarter: 2019Q3

REPORT INFORMATION
  Report Type: Spontaneous
  Country: DE (occurrence: DE)
  Receive Date: 20190930
  Receipt Date: 20190930
  Transmission Date: 20191005
  Serious: Yes (Life-Threatening, Other)
  Sender: FDA-Public Use
  Company Number: DE-BRISTOL-MYERS SQUIBB COMPANY-BMS-2019-093993

PATIENT
  Age: 80 Year
  Sex: Male

DRUGS (1)
  1. NIVOLUMAB [Suspect]
     Active Substance: NIVOLUMAB
     Indication: MALIGNANT MELANOMA
     Dosage: UNAVAILABLE
     Route: 065

REACTIONS (4)
  - Gastroenteritis norovirus [Unknown]
  - Asthenia [Unknown]
  - Myositis [Unknown]
  - Hepatic enzyme increased [Unknown]
